FAERS Safety Report 22619832 (Version 1)
Quarter: 2023Q2

REPORT INFORMATION
  Report Type: Spontaneous
  Country: IN (occurrence: IN)
  Receive Date: 20230620
  Receipt Date: 20230620
  Transmission Date: 20230721
  Serious: Yes (Hospitalization, Other)
  Sender: FDA-Public Use
  Company Number: IN-MYLANLABS-2023M1064087

PATIENT
  Age: 47 Year
  Sex: Female

DRUGS (1)
  1. METHOTREXATE [Suspect]
     Active Substance: METHOTREXATE
     Indication: Psoriasis
     Dosage: 15 MILLIGRAM, QD (PRESCRIBED METHOTREXATE 15MG/WEEK. HOWEVER, SHE ACCIDENTALLY.....
     Route: 065

REACTIONS (3)
  - Squamous cell carcinoma of the oral cavity [Unknown]
  - Toxicity to various agents [Unknown]
  - Inappropriate schedule of product administration [Unknown]
